FAERS Safety Report 4928114-8 (Version None)
Quarter: 2006Q1

REPORT INFORMATION
  Report Type: 
  Country: None (occurrence: None)
  Receive Date: 20060223
  Receipt Date: 20060209
  Transmission Date: 20060701
  Serious: Yes (Life-Threatening)
  Sender: FDA-Public Use
  Company Number: FR-2006-002771

PATIENT
  Age: 59 Year
  Sex: Male
  Weight: 63 kg

DRUGS (8)
  1. FLUDARA I.V. (FLUDARABINE PHOSPAHATE) AMPULE [Suspect]
     Dosage: SEE IMAGE
     Route: 042
     Dates: start: 20001016, end: 20001201
  2. FLUDARA I.V. (FLUDARABINE PHOSPAHATE) AMPULE [Suspect]
     Dosage: SEE IMAGE
     Route: 042
     Dates: end: 20010314
  3. NOVANTRON (MITOXANTRONE, MITOXANTRONE HYDROCHLORDIE) [Suspect]
     Indication: B-CELL LYMPHOMA
     Dosage: SEE IMAGE
     Route: 042
     Dates: start: 20001016, end: 20001201
  4. NOVANTRON (MITOXANTRONE, MITOXANTRONE HYDROCHLORDIE) [Suspect]
     Indication: B-CELL LYMPHOMA
     Dosage: SEE IMAGE
     Route: 042
     Dates: end: 20010314
  5. MABTHERA (RITUXIMAB) [Suspect]
     Dosage: 700 MG, CYCLES, INTRAVENOUS
     Route: 042
     Dates: start: 20001016, end: 20001201
  6. DOXORUBICIN HYDROCHLORIDE [Suspect]
     Indication: B-CELL LYMPHOMA
     Dosage: INTRAVENOUS
     Route: 042
     Dates: start: 19980515, end: 19980715
  7. ENDOXAN (CYCLOPHOSPHAMIDE) [Suspect]
     Indication: B-CELL LYMPHOMA
     Dosage: INTRAVENOUS
     Route: 042
     Dates: start: 19980515, end: 19980715
  8. VEPESID [Suspect]
     Indication: B-CELL LYMPHOMA
     Dosage: INTRAVENOUS
     Route: 042
     Dates: start: 19980815, end: 19980815

REACTIONS (5)
  - ANAEMIA [None]
  - GASTRIC CANCER STAGE IV [None]
  - METASTASES TO PERITONEUM [None]
  - NEUTROPENIA [None]
  - SYSTEMIC INFLAMMATORY RESPONSE SYNDROME [None]
